FAERS Safety Report 8332134-3 (Version None)
Quarter: 2012Q2

REPORT INFORMATION
  Report Type: 
  Country: None (occurrence: None)
  Receive Date: 20120502
  Receipt Date: 20120423
  Transmission Date: 20120825
  Serious: Yes (Other)
  Sender: FDA-Public Use
  Company Number: US-MYLANLABS-2012S1006942

PATIENT
  Age: 46 Year
  Sex: Male
  Weight: 89.36 kg

DRUGS (12)
  1. CLOZAPINE [Suspect]
     Indication: PSYCHOTIC BEHAVIOUR
     Route: 048
     Dates: start: 20091009, end: 20120326
  2. LEXAPRO [Concomitant]
     Route: 048
  3. DOCUSATE SODIUM [Concomitant]
  4. AVAPRO [Concomitant]
  5. CLOZAPINE [Suspect]
     Indication: SCHIZOPHRENIA
     Route: 048
     Dates: start: 20091009, end: 20120326
  6. TOPROL-XL [Concomitant]
     Route: 048
  7. JANUVIA [Concomitant]
     Route: 048
  8. HALDOL [Concomitant]
  9. LOPID [Concomitant]
     Route: 048
  10. ZYLOPRIM [Concomitant]
     Route: 048
  11. METFORMIN HCL [Concomitant]
     Route: 048
  12. SYNTHROID [Concomitant]

REACTIONS (5)
  - SLOW SPEECH [None]
  - CONFUSIONAL STATE [None]
  - SOCIAL AVOIDANT BEHAVIOUR [None]
  - LEUKOPENIA [None]
  - GRANULOCYTOPENIA [None]
